FAERS Safety Report 6521322-4 (Version None)
Quarter: 2009Q4

REPORT INFORMATION
  Report Type: 
  Country: None (occurrence: None)
  Receive Date: 20091230
  Receipt Date: 20091218
  Transmission Date: 20100525
  Serious: Yes (Hospitalization)
  Sender: FDA-Public Use
  Company Number: JP-BAYER-200812381BYL

PATIENT
  Age: 36 Year
  Sex: Female

DRUGS (12)
  1. BETAFERON [Suspect]
     Indication: RELAPSING-REMITTING MULTIPLE SCLEROSIS
     Route: 058
     Dates: start: 20090209
  2. BETAFERON [Suspect]
     Route: 058
     Dates: start: 20040820, end: 20090208
  3. VOLTAREN [Concomitant]
     Indication: PROPHYLAXIS
     Dosage: UNIT DOSE: 25 MG
     Route: 054
     Dates: start: 20040820, end: 20040830
  4. LOXONIN [Concomitant]
     Indication: PROPHYLAXIS
     Dosage: TOTAL DAILY DOSE: 60 MG  UNIT DOSE: 60 MG
     Route: 048
     Dates: start: 20080820, end: 20080826
  5. APLACE [Concomitant]
     Indication: PROPHYLAXIS AGAINST GASTROINTESTINAL ULCER
     Dosage: AS USED: 200 MG
     Route: 048
     Dates: start: 20040820, end: 20040902
  6. LENDORMIN [Concomitant]
     Indication: INSOMNIA
     Dosage: UNIT DOSE: 0.25 MG
     Route: 048
     Dates: start: 20040821, end: 20040827
  7. MAGNESIUM OXIDE [Concomitant]
     Indication: CONSTIPATION
     Dosage: AS USED: 1.5 G
     Route: 048
     Dates: start: 20040824, end: 20040901
  8. PURSENNID [Concomitant]
     Indication: CONSTIPATION
     Dosage: TOTAL DAILY DOSE: 12 MG  UNIT DOSE: 12 MG
     Route: 048
     Dates: start: 20040824, end: 20040826
  9. LECICARBON [Concomitant]
     Indication: CONSTIPATION
     Dosage: TOTAL DAILY DOSE: 1 DF  UNIT DOSE: 1 DF
     Route: 048
     Dates: start: 20040824, end: 20040824
  10. LIPITOR [Concomitant]
     Indication: HYPERLIPIDAEMIA
     Dosage: TOTAL DAILY DOSE: 10 MG  UNIT DOSE: 10 MG
     Route: 048
     Dates: start: 20060417
  11. SOLU-MEDROL [Concomitant]
     Indication: MULTIPLE SCLEROSIS RELAPSE
     Dosage: TOTAL DAILY DOSE: 1000 MG  UNIT DOSE: 1000 MG
     Route: 042
     Dates: start: 20060726, end: 20060728
  12. GASTER D [Concomitant]
     Indication: PROPHYLAXIS AGAINST GASTROINTESTINAL ULCER
     Dosage: TOTAL DAILY DOSE: 20 MG  UNIT DOSE: 20 MG
     Route: 048
     Dates: start: 20060726, end: 20060801

REACTIONS (8)
  - BLADDER CANCER [None]
  - BLADDER CANCER RECURRENT [None]
  - DEPRESSION [None]
  - HAEMATURIA [None]
  - HYPERCHOLESTEROLAEMIA [None]
  - INJECTION SITE ERYTHEMA [None]
  - INJECTION SITE PAIN [None]
  - LYMPHOPENIA [None]
